FAERS Safety Report 6383088-0 (Version None)
Quarter: 2009Q3

REPORT INFORMATION
  Report Type: 
  Country: None (occurrence: None)
  Receive Date: 20090928
  Receipt Date: 20090915
  Transmission Date: 20100115
  Serious: Yes (Hospitalization, Other)
  Sender: FDA-Public Use
  Company Number: 231714K09USA

PATIENT
  Age: 52 Year
  Sex: Female
  Weight: 54 kg

DRUGS (10)
  1. REBIF [Suspect]
     Indication: MULTIPLE SCLEROSIS
     Dosage: 44 MCG, 3 IN 1 WEEKS, SUBCUTANEOUS
     Route: 058
     Dates: start: 20080421, end: 20090527
  2. REBIF [Suspect]
     Indication: MULTIPLE SCLEROSIS
     Dosage: 44 MCG, 3 IN 1 WEEKS, SUBCUTANEOUS
     Route: 058
     Dates: start: 20090101
  3. ADVIL [Concomitant]
  4. BENADRYL [Concomitant]
  5. XANAX [Concomitant]
  6. WELLBUTRIN XL [Concomitant]
  7. ESTRADIOL (ESTRADIOL /00045401/) [Concomitant]
  8. BACLOFEN [Concomitant]
  9. LUNESTA [Concomitant]
  10. CLONAZEPAM [Concomitant]

REACTIONS (10)
  - ELECTROCARDIOGRAM ABNORMAL [None]
  - FALL [None]
  - HAEMORRHAGE [None]
  - HYPOAESTHESIA [None]
  - INJECTION SITE ERYTHEMA [None]
  - INTERVERTEBRAL DISC DISORDER [None]
  - INTESTINAL OBSTRUCTION [None]
  - PAIN IN EXTREMITY [None]
  - SURGICAL FAILURE [None]
  - VOLVULUS [None]
